FAERS Safety Report 9155287 (Version 2)
Quarter: 2013Q2

REPORT INFORMATION
  Report Type: Spontaneous
  Country: US (occurrence: US)
  Receive Date: 20130311
  Receipt Date: 20130419
  Transmission Date: 20140414
  Serious: Yes (Death, Other)
  Sender: FDA-Public Use
  Company Number: US-ASTRAZENECA-2013SE15384

PATIENT
  Age: 45 Year
  Sex: Female

DRUGS (3)
  1. SEROQUEL XR [Suspect]
     Route: 048
  2. FLUTICASONE [Concomitant]
  3. VALIUM [Concomitant]

REACTIONS (2)
  - Sudden death [Fatal]
  - Toxicity to various agents [Unknown]
